FAERS Safety Report 24547524 (Version 1)
Quarter: 2024Q4

REPORT INFORMATION
  Report Type: Report from Study
  Country: MX (occurrence: MX)
  Receive Date: 20241025
  Receipt Date: 20241025
  Transmission Date: 20250114
  Serious: Yes (Death)
  Sender: ROCHE
  Company Number: MX-ROCHE-10000113958

PATIENT
  Sex: Female
  Weight: 60 kg

DRUGS (1)
  1. KADCYLA [Suspect]
     Active Substance: ADO-TRASTUZUMAB EMTANSINE
     Indication: Breast cancer metastatic
     Route: 042
     Dates: start: 20230307, end: 202403

REACTIONS (4)
  - Decreased appetite [Fatal]
  - Disease progression [Fatal]
  - Drug ineffective [Unknown]
  - Neoplasm malignant [Fatal]
